FAERS Safety Report 7883228-8 (Version None)
Quarter: 2011Q4

REPORT INFORMATION
  Report Type: 
  Country: None (occurrence: None)
  Receive Date: 20111031
  Receipt Date: 20111031
  Transmission Date: 20120403
  Serious: Yes (Other)
  Sender: FDA-Public Use
  Company Number: None

PATIENT
  Sex: Female
  Weight: 70.7 kg

DRUGS (2)
  1. ZONISAMIDE [Suspect]
     Indication: EPILEPSY
     Dosage: TWO BID PO
     Route: 048
     Dates: start: 20080208
  2. KEPPRA XR [Suspect]
     Indication: ENCEPHALOPATHY
     Dosage: 8 QD PO
     Route: 048
     Dates: start: 20030603

REACTIONS (3)
  - CONVULSION [None]
  - RASH [None]
  - PRODUCT SUBSTITUTION ISSUE [None]
